FAERS Safety Report 5730228-X (Version None)
Quarter: 2008Q2

REPORT INFORMATION
  Report Type: 
  Country: None (occurrence: None)
  Receive Date: 20080502
  Receipt Date: 20080418
  Transmission Date: 20081010
  Serious: Yes (Death, Life-Threatening, Other)
  Sender: FDA-Public Use
  Company Number: 2008035218

PATIENT
  Age: 66 Year
  Sex: Male

DRUGS (1)
  1. FRAGMIN [Suspect]
     Dosage: 5000 I.U. (2500 I.U.,1 IN 2 D)

REACTIONS (2)
  - ANAPHYLACTIC SHOCK [None]
  - MALAISE [None]
